FAERS Safety Report 14729090 (Version 1)
Quarter: 2018Q2

REPORT INFORMATION
  Report Type: Spontaneous
  Country: US (occurrence: US)
  Receive Date: 20180402
  Receipt Date: 20180402
  Transmission Date: 20180711
  Serious: Yes (Other)
  Sender: FDA-Public Use
  Company Number: None

PATIENT
  Sex: Female
  Weight: 90 kg

DRUGS (6)
  1. DRAMAMINE [Concomitant]
     Active Substance: DIMENHYDRINATE
  2. CYMBALTA [Suspect]
     Active Substance: DULOXETINE HYDROCHLORIDE
     Indication: FIBROMYALGIA
     Dosage: ?          QUANTITY:2 CAPSULE(S);?
     Route: 048
  3. CBD OILS [Concomitant]
  4. CBD SALVE [Concomitant]
  5. GABAPENTIN. [Concomitant]
     Active Substance: GABAPENTIN
  6. CELEBREX [Concomitant]
     Active Substance: CELECOXIB

REACTIONS (3)
  - Hyperhidrosis [None]
  - Anosmia [None]
  - Ageusia [None]
